FAERS Safety Report 14003783 (Version 2)
Quarter: 2017Q4

REPORT INFORMATION
  Report Type: Spontaneous
  Country: US (occurrence: US)
  Receive Date: 20170922
  Receipt Date: 20171123
  Transmission Date: 20180321
  Serious: No
  Sender: FDA-Public Use
  Company Number: US-JNJFOC-20170804157

PATIENT
  Sex: Male
  Weight: 88 kg

DRUGS (12)
  1. FENTANYL. [Suspect]
     Active Substance: FENTANYL
     Indication: PRODUCT USED FOR UNKNOWN INDICATION
     Route: 065
  2. DURAGESIC [Suspect]
     Active Substance: FENTANYL
     Indication: ARACHNOIDITIS
     Route: 062
  3. FENTANYL TRANSDERMAL SYSTEM [Suspect]
     Active Substance: FENTANYL
     Indication: ARACHNOIDITIS
     Route: 062
  4. CYANOCOBALAMIN. [Concomitant]
     Active Substance: CYANOCOBALAMIN
     Route: 065
  5. FENTANYL TRANSDERMAL SYSTEM [Suspect]
     Active Substance: FENTANYL
     Indication: PRODUCT USED FOR UNKNOWN INDICATION
     Route: 065
  6. DURAGESIC [Suspect]
     Active Substance: FENTANYL
     Indication: ARACHNOIDITIS
     Route: 062
  7. OMEPRAZOLE. [Concomitant]
     Active Substance: OMEPRAZOLE
     Indication: GASTROOESOPHAGEAL REFLUX DISEASE
     Route: 065
  8. DURAGESIC [Suspect]
     Active Substance: FENTANYL
     Indication: ARACHNOIDITIS
     Route: 062
  9. DURAGESIC [Suspect]
     Active Substance: FENTANYL
     Indication: ARACHNOIDITIS
     Route: 062
  10. NORCO [Concomitant]
     Active Substance: ACETAMINOPHEN\HYDROCODONE BITARTRATE
     Indication: BREAKTHROUGH PAIN
     Dosage: 1 TO 2 TABLETS
     Route: 065
  11. VALIUM [Concomitant]
     Active Substance: DIAZEPAM
     Route: 065
  12. MAGNESIUM [Concomitant]
     Active Substance: MAGNESIUM
     Route: 065

REACTIONS (8)
  - Hyperhidrosis [Not Recovered/Not Resolved]
  - Product availability issue [Unknown]
  - Middle insomnia [Unknown]
  - Drug ineffective [Unknown]
  - Product adhesion issue [Unknown]
  - Inappropriate schedule of drug administration [Unknown]
  - Muscle spasms [Unknown]
  - Feeling cold [Not Recovered/Not Resolved]
